FAERS Safety Report 12809145 (Version 2)
Quarter: 2016Q4

REPORT INFORMATION
  Report Type: Spontaneous
  Country: GB (occurrence: GB)
  Receive Date: 20161004
  Receipt Date: 20161207
  Transmission Date: 20170207
  Serious: Yes (Other)
  Sender: FDA-Public Use
  Company Number: GB-BAYER-2016-186538

PATIENT
  Sex: Female

DRUGS (11)
  1. ESTRADIOL [ESTRADIOL] [Concomitant]
     Indication: HORMONE REPLACEMENT THERAPY
  2. ETHINYLESTRADIOL [Concomitant]
     Active Substance: ETHINYL ESTRADIOL
     Indication: MENOPAUSE
     Dosage: PATCHES, 3 X 100 MCG
  3. ETHINYLESTRADIOL [Concomitant]
     Active Substance: ETHINYL ESTRADIOL
     Indication: PREMENSTRUAL SYNDROME
     Dosage: PATCHES, 1 X 100 MCG
  4. MIRENA [Suspect]
     Active Substance: LEVONORGESTREL
     Indication: CONTRACEPTION
  5. MIRENA [Suspect]
     Active Substance: LEVONORGESTREL
     Indication: METRORRHAGIA
  6. MIRENA [Suspect]
     Active Substance: LEVONORGESTREL
     Indication: CONTRACEPTION
     Dosage: UNK
  7. MIRENA [Suspect]
     Active Substance: LEVONORGESTREL
     Indication: CONTRACEPTION
     Dosage: UNK
  8. ETHINYLESTRADIOL [Concomitant]
     Active Substance: ETHINYL ESTRADIOL
     Indication: PREMENSTRUAL SYNDROME
     Dosage: 50 MCG/24HR, QD
     Route: 048
  9. ETHINYLESTRADIOL [Concomitant]
     Active Substance: ETHINYL ESTRADIOL
     Indication: PREMENSTRUAL SYNDROME
     Dosage: PATCHES, 2 X 100 MCG
  10. ULIPRISTAL ACETATE [Concomitant]
     Active Substance: ULIPRISTAL ACETATE
  11. MIRENA [Suspect]
     Active Substance: LEVONORGESTREL
     Indication: METRORRHAGIA
     Dosage: UNK

REACTIONS (3)
  - Postmenopausal haemorrhage [None]
  - Uterine leiomyoma [None]
  - Amenorrhoea [None]
